FAERS Safety Report 21545187 (Version 2)
Quarter: 2023Q1

REPORT INFORMATION
  Report Type: Report from Study
  Country: US (occurrence: US)
  Receive Date: 20221103
  Receipt Date: 20230106
  Transmission Date: 20230418
  Serious: Yes (Hospitalization, Other)
  Sender: FDA-Public Use
  Company Number: US-ABBVIE-4185978

PATIENT
  Age: 54 Year
  Sex: Female
  Weight: 56.7 kg

DRUGS (3)
  1. HUMIRA [Suspect]
     Active Substance: ADALIMUMAB
     Indication: Colitis ulcerative
     Dosage: CESSATION DATE FOR EVENT OF RUPTURED SMALL BLOOD VESSEL WAS 2022.
     Route: 058
  2. HUMIRA [Suspect]
     Active Substance: ADALIMUMAB
     Indication: Psoriatic arthropathy
  3. HUMIRA [Suspect]
     Active Substance: ADALIMUMAB
     Indication: Rheumatoid arthritis

REACTIONS (4)
  - Vascular rupture [Recovered/Resolved]
  - Large intestinal haemorrhage [Recovered/Resolved]
  - Localised infection [Recovering/Resolving]
  - Large intestine polyp [Recovering/Resolving]

NARRATIVE: CASE EVENT DATE: 20221026
